FAERS Safety Report 11883058 (Version 1)
Quarter: 2015Q4

REPORT INFORMATION
  Report Type: Report from Study
  Country: US (occurrence: US)
  Receive Date: 20151231
  Receipt Date: 20151231
  Transmission Date: 20160305
  Serious: Yes (Death, Hospitalization)
  Sender: FDA-Public Use
  Company Number: US-AMGEN-USACT2014043385

PATIENT
  Age: 27 Year
  Sex: Female

DRUGS (28)
  1. ACYCLOVIR                          /00587301/ [Concomitant]
     Active Substance: ACYCLOVIR
     Dosage: UNK
  2. INOTUZUMAB OZOGAMICIN [Concomitant]
     Active Substance: INOTUZUMAB OZOGAMICIN
     Indication: ACUTE LYMPHOCYTIC LEUKAEMIA
     Dosage: 1.8 MG/M2, 3 MG, DAY 03, ONCE A DAY, UNK
     Route: 042
     Dates: start: 20140316, end: 20140316
  3. MESNA. [Concomitant]
     Active Substance: MESNA
     Dosage: 498 MG, DAY 03, UNK
     Route: 042
     Dates: start: 20140316, end: 20140316
  4. DEXAMETHASONE. [Concomitant]
     Active Substance: DEXAMETHASONE
     Indication: ACUTE LYMPHOCYTIC LEUKAEMIA
     Dosage: 20 MG, DAY 01, UNK
     Route: 042
     Dates: start: 20140314, end: 20140314
  5. VINCRISTINE [Concomitant]
     Active Substance: VINCRISTINE
     Dosage: 2 MG, UNK
     Route: 042
     Dates: start: 20140322, end: 20140322
  6. SENNA                              /00142201/ [Concomitant]
     Active Substance: SENNA LEAF
     Dosage: UNK
  7. MESNA. [Concomitant]
     Active Substance: MESNA
     Dosage: 498 MG, DAY 02, UNK
     Route: 042
     Dates: start: 20140315, end: 20140315
  8. DEXAMETHASONE. [Concomitant]
     Active Substance: DEXAMETHASONE
     Dosage: 20 MG, DAY 02, UNK
     Route: 042
     Dates: start: 20140315, end: 20140315
  9. HYDRALAZINE [Concomitant]
     Active Substance: HYDRALAZINE HYDROCHLORIDE
     Dosage: UNK
  10. PEGFILGRASTIM [Suspect]
     Active Substance: PEGFILGRASTIM
     Indication: ACUTE LYMPHOCYTIC LEUKAEMIA
     Dosage: 6 MG, UNK, DAY 5
     Route: 058
     Dates: start: 20140318, end: 20140318
  11. DEXAMETHASONE. [Concomitant]
     Active Substance: DEXAMETHASONE
     Dosage: 20 MG, DAY 04, UNK
     Route: 042
     Dates: start: 20140317, end: 20140317
  12. VINCRISTINE [Concomitant]
     Active Substance: VINCRISTINE
     Indication: ACUTE LYMPHOCYTIC LEUKAEMIA
     Dosage: 2 MG, DAY 02, UNK
     Route: 042
     Dates: start: 20140315, end: 20140315
  13. CEFEPIME [Concomitant]
     Active Substance: CEFEPIME HYDROCHLORIDE
     Dosage: UNK
  14. ESTRADIOL. [Concomitant]
     Active Substance: ESTRADIOL
     Dosage: UNK
  15. CYCLOPHOSPHAMIDE. [Concomitant]
     Active Substance: CYCLOPHOSPHAMIDE
     Dosage: 249 MG, DAY 03, DAILY, UNK
     Dates: start: 20140316, end: 20140316
  16. METHOTREXATE [Concomitant]
     Active Substance: METHOTREXATE
     Indication: ACUTE LYMPHOCYTIC LEUKAEMIA
     Dosage: 12 MG, DAY 04, UNK
     Route: 037
     Dates: start: 20140317, end: 20140317
  17. PANTOPRAZOLE [Concomitant]
     Active Substance: PANTOPRAZOLE SODIUM
     Dosage: UNK
  18. CYCLOPHOSPHAMIDE. [Concomitant]
     Active Substance: CYCLOPHOSPHAMIDE
     Dosage: 249 MG, DAY 02, DAILY, UNK
     Route: 042
     Dates: start: 20140315, end: 20140315
  19. NALOXONE [Concomitant]
     Active Substance: NALOXONE
     Dosage: UNK
  20. LINEZOLID. [Concomitant]
     Active Substance: LINEZOLID
     Dosage: UNK
  21. HYDROCORTISONE. [Concomitant]
     Active Substance: HYDROCORTISONE
     Dosage: UNK
  22. CYCLOPHOSPHAMIDE. [Concomitant]
     Active Substance: CYCLOPHOSPHAMIDE
     Indication: ACUTE LYMPHOCYTIC LEUKAEMIA
     Dosage: 249 MG, ON DAY 01, DAILY, UNK
     Route: 042
     Dates: start: 20140314, end: 20140314
  23. MESNA. [Concomitant]
     Active Substance: MESNA
     Indication: ACUTE LYMPHOCYTIC LEUKAEMIA
     Dosage: 498 MG, DAY 01, UNK
     Route: 042
     Dates: start: 20140314, end: 20140314
  24. DEXAMETHASONE. [Concomitant]
     Active Substance: DEXAMETHASONE
     Dosage: 20 MG, DAY 03, UNK
     Route: 042
     Dates: start: 20140316, end: 20140316
  25. LACTULOSE. [Concomitant]
     Active Substance: LACTULOSE
     Dosage: UNK
  26. DEXAMETHASONE. [Concomitant]
     Active Substance: DEXAMETHASONE
     Dosage: 20 MG, DAY 11, UNK
     Route: 042
     Dates: start: 20140324, end: 20140324
  27. HYDROMORPHONE [Concomitant]
     Active Substance: HYDROMORPHONE
     Dosage: UNK
  28. METRONIDAZOLE. [Concomitant]
     Active Substance: METRONIDAZOLE
     Dosage: UNK

REACTIONS (1)
  - Venoocclusive liver disease [Fatal]

NARRATIVE: CASE EVENT DATE: 20140331
